FAERS Safety Report 24024652 (Version 2)
Quarter: 2024Q3

REPORT INFORMATION
  Report Type: Spontaneous
  Country: CN (occurrence: CN)
  Receive Date: 20240628
  Receipt Date: 20240710
  Transmission Date: 20241017
  Serious: No
  Sender: ROCHE
  Company Number: CN-ROCHE-3532425

PATIENT
  Age: 52 Year
  Sex: Male

DRUGS (1)
  1. ALECENSA [Suspect]
     Active Substance: ALECTINIB HYDROCHLORIDE
     Indication: Lung neoplasm malignant
     Dosage: THE PATIENT EXPERIENCED DOSE REDUCTION AND WITHDRAWAL DURING MEDICATION, AND THEN THE DOSE RETURNED
     Route: 065

REACTIONS (1)
  - Dizziness [Unknown]
